FAERS Safety Report 17116597 (Version 2)
Quarter: 2021Q4

REPORT INFORMATION
  Report Type: Spontaneous
  Country: US (occurrence: US)
  Receive Date: 20191205
  Receipt Date: 20211123
  Transmission Date: 20220303
  Serious: No
  Sender: FDA-Public Use
  Company Number: US-ASTELLAS-1725851

PATIENT
  Sex: Male

DRUGS (1)
  1. TARCEVA [Suspect]
     Active Substance: ERLOTINIB HYDROCHLORIDE
     Indication: Lung neoplasm malignant
     Route: 048
     Dates: start: 20151127

REACTIONS (6)
  - Oral pain [Unknown]
  - Contusion [Unknown]
  - Onychoclasis [Unknown]
  - Dry eye [Unknown]
  - Nausea [Recovering/Resolving]
  - Product colour issue [Unknown]
